FAERS Safety Report 5632116-6 (Version None)
Quarter: 2008Q1

REPORT INFORMATION
  Report Type: 
  Country: None (occurrence: None)
  Receive Date: 20080220
  Receipt Date: 20080215
  Transmission Date: 20080703
  Serious: Yes (Life-Threatening, Hospitalization)
  Sender: FDA-Public Use
  Company Number: B0508904A

PATIENT
  Age: 53 Year
  Sex: Female

DRUGS (4)
  1. ZEFFIX [Suspect]
     Indication: HEPATITIS B
     Dosage: 100MG PER DAY
     Route: 048
     Dates: start: 20070701, end: 20071023
  2. CHLORAMBUCIL [Concomitant]
     Indication: NON-HODGKIN'S LYMPHOMA
  3. PREDNISONE TAB [Concomitant]
     Indication: NON-HODGKIN'S LYMPHOMA
  4. CHOP 2 [Concomitant]
     Indication: NON-HODGKIN'S LYMPHOMA

REACTIONS (6)
  - ABDOMINAL PAIN UPPER [None]
  - DRUG INEFFECTIVE [None]
  - HEPATIC ENCEPHALOPATHY [None]
  - HYPERBILIRUBINAEMIA [None]
  - PANCREATITIS NECROTISING [None]
  - TRANSAMINASES INCREASED [None]
